FAERS Safety Report 21602700 (Version 1)
Quarter: 2022Q4

REPORT INFORMATION
  Report Type: Report from Study
  Country: US (occurrence: US)
  Receive Date: 20221116
  Receipt Date: 20221116
  Transmission Date: 20230113
  Serious: No
  Sender: FDA-Public Use
  Company Number: US-ABBVIE-4174099

PATIENT
  Sex: Male
  Weight: 95.707 kg

DRUGS (1)
  1. RINVOQ [Suspect]
     Active Substance: UPADACITINIB
     Indication: Colitis ulcerative
     Route: 048

REACTIONS (4)
  - Illness [Unknown]
  - Gastrointestinal disorder [Unknown]
  - Palpitations [Unknown]
  - Gastric disorder [Unknown]
